FAERS Safety Report 21569678 (Version 1)
Quarter: 2022Q4

REPORT INFORMATION
  Report Type: Spontaneous
  Country: US (occurrence: US)
  Receive Date: 20221109
  Receipt Date: 20221109
  Transmission Date: 20230113
  Serious: No
  Sender: FDA-Public Use
  Company Number: US-PRINSTON PHARMACEUTICAL INC.-2022PRN00201

PATIENT
  Sex: Female
  Weight: 72.109 kg

DRUGS (9)
  1. PAROXETINE [Suspect]
     Active Substance: PAROXETINE
     Indication: Prophylaxis
     Dosage: 10 MG, 1X/DAY AT NIGHT
     Route: 048
     Dates: start: 20220522, end: 20220524
  2. OXYBUTYNIN [Concomitant]
     Active Substance: OXYBUTYNIN
     Dosage: 5 MG (HALF A TABLET), 2X/DAY
  3. NABUMETONE [Concomitant]
     Active Substance: NABUMETONE
     Dosage: 1000 MG, 1X/DAY
  4. TRAMADOL [Concomitant]
     Active Substance: TRAMADOL
     Dosage: 50 MG, UP TO 4X/DAY (USUALLY TAKES 1 PER DAY)
  5. ENALAPRIL [Concomitant]
     Active Substance: ENALAPRIL
     Dosage: 20 MG, 1X/DAY
  6. PRAVASTATIN [Concomitant]
     Active Substance: PRAVASTATIN
     Dosage: 40 MG, 1X/DAY
  7. CALCIUM\VITAMIN D [Concomitant]
     Active Substance: CALCIUM\VITAMIN D
  8. MAGNESIUM [Concomitant]
     Active Substance: MAGNESIUM
  9. JOINT SOOTHER [Concomitant]

REACTIONS (6)
  - Chills [Recovering/Resolving]
  - Nausea [Recovered/Resolved]
  - Dizziness [Recovered/Resolved]
  - Tremor [Recovered/Resolved]
  - Asthenia [Recovered/Resolved]
  - Product dose omission issue [Not Recovered/Not Resolved]

NARRATIVE: CASE EVENT DATE: 20220522
